FAERS Safety Report 6485570-4 (Version None)
Quarter: 2009Q4

REPORT INFORMATION
  Report Type: 
  Country: None (occurrence: None)
  Receive Date: 20091204
  Receipt Date: 20091127
  Transmission Date: 20100525
  Serious: Yes (Hospitalization)
  Sender: FDA-Public Use
  Company Number: 2009JP006664

PATIENT
  Age: 62 Year
  Weight: 53 kg

DRUGS (12)
  1. TACROLIMUS [Suspect]
     Indication: LUPUS NEPHRITIS
     Dosage: 3 MG, UNKNOWN/D, ORAL
     Route: 048
  2. LIPITOR [Suspect]
     Dosage: 10 MG, UNKNOWN/D, ORAL
     Route: 048
  3. PREDNISOLONE [Concomitant]
  4. RABEPRAZOLE SODIUM [Concomitant]
  5. AMLODIN (AMLODIPINE BESILATE) ORODISPERSIBLE [Concomitant]
  6. ALFAROL (ALFACALCIDOL) [Concomitant]
  7. MUCOSTA (REBAMIPIDE) [Concomitant]
  8. URSODIOL [Concomitant]
  9. PLETAL [Concomitant]
  10. BONALON (ALENDRONATE SODIUM) [Concomitant]
  11. WARFARIN SODIUM [Concomitant]
  12. NEORAL [Concomitant]

REACTIONS (1)
  - BLOOD CREATINE PHOSPHOKINASE INCREASED [None]
